FAERS Safety Report 8843896 (Version 2)
Quarter: 2012Q4

REPORT INFORMATION
  Report Type: 
  Country: US (occurrence: US)
  Receive Date: 20121016
  Receipt Date: 20121126
  Transmission Date: 20130627
  Serious: Yes (Hospitalization, Other)
  Sender: FDA-Public Use
  Company Number: US-ASTELLAS-2012US010070

PATIENT
  Age: 60 Year
  Sex: Male
  Weight: 114 kg

DRUGS (5)
  1. PROGRAF [Suspect]
     Indication: RENAL TRANSPLANT
     Dosage: 4 mg, UID/QD
     Route: 048
  2. PROGRAF [Suspect]
     Dosage: 1 mg, bid
     Route: 048
  3. CELLCEPT                           /01275102/ [Concomitant]
     Indication: RENAL TRANSPLANT
     Dosage: 1000 mg, bid
     Route: 065
  4. DELTASONE                          /00044701/ [Concomitant]
     Indication: ORGAN TRANSPLANT
     Dosage: 5 mg, UID/QD
     Route: 048
  5. VASOTEC                            /00574902/ [Concomitant]
     Indication: PRODUCT USED FOR UNKNOWN INDICATION
     Dosage: UNK
     Route: 065

REACTIONS (8)
  - Drug ineffective [Unknown]
  - Chronic allograft nephropathy [Unknown]
  - Proteinuria [Unknown]
  - Diabetes mellitus inadequate control [Unknown]
  - Kidney transplant rejection [Unknown]
  - Hypertension [Unknown]
  - Cellulitis [Unknown]
  - Bradycardia [Unknown]
